FAERS Safety Report 7815073-3 (Version None)
Quarter: 2011Q4

REPORT INFORMATION
  Report Type: 
  Country: None (occurrence: None)
  Receive Date: 20111013
  Receipt Date: 20111013
  Transmission Date: 20120403
  Serious: Yes (Other)
  Sender: FDA-Public Use
  Company Number: None

PATIENT
  Sex: Female
  Weight: 62.5964 kg

DRUGS (2)
  1. BOTOX [Suspect]
     Indication: TORTICOLLIS
     Dates: start: 20110301
  2. BOTOX [Suspect]
     Indication: TORTICOLLIS
     Dates: start: 20110601

REACTIONS (2)
  - ALOPECIA [None]
  - SKIN BURNING SENSATION [None]
